FAERS Safety Report 5618169-X (Version None)
Quarter: 2008Q1

REPORT INFORMATION
  Report Type: 
  Country: None (occurrence: None)
  Receive Date: 20080207
  Receipt Date: 20071031
  Transmission Date: 20080703
  Serious: No
  Sender: FDA-Public Use
  Company Number: A0691792A

PATIENT
  Age: 11 Year
  Sex: Female
  Weight: 36.4 kg

DRUGS (1)
  1. PAXIL [Suspect]
     Dosage: 20MG AT NIGHT
     Route: 048
     Dates: start: 20070101

REACTIONS (2)
  - HEADACHE [None]
  - WITHDRAWAL SYNDROME [None]
